FAERS Safety Report 4021997 (Version 2)
Quarter: 2020Q2

REPORT INFORMATION
  Report Type: Report from Study
  Country: US (occurrence: US)
  Receive Date: 20031016
  Receipt Date: 20200416
  Transmission Date: 20200714
  Serious: Yes (Death, Other)
  Sender: FDA-Public Use
  Company Number: US-JNJFOC-20031002261

PATIENT
  Age: 32 Year
  Sex: Male

DRUGS (1)
  1. CISAPRIDE [Suspect]
     Active Substance: CISAPRIDE
     Indication: IMPAIRED GASTRIC EMPTYING
     Route: 048
     Dates: start: 20011021, end: 20031003

REACTIONS (2)
  - Hyperkalaemia [Not Recovered/Not Resolved]
  - Diabetic ketoacidosis [Fatal]

NARRATIVE: CASE EVENT DATE: 20031003
